FAERS Safety Report 5345899-X (Version None)
Quarter: 2007Q2

REPORT INFORMATION
  Report Type: 
  Country: None (occurrence: None)
  Receive Date: 20070605
  Receipt Date: 20070601
  Transmission Date: 20071010
  Serious: Yes (Other)
  Sender: FDA-Public Use
  Company Number: A0649995A

PATIENT
  Age: 60 Year
  Sex: Male
  Weight: 70.9 kg

DRUGS (2)
  1. LAMICTAL [Suspect]
     Indication: BIPOLAR DISORDER
     Dosage: 25MG PER DAY
     Route: 048
     Dates: start: 20070326, end: 20070426
  2. ADDERALL 10 [Concomitant]

REACTIONS (6)
  - DYSPHAGIA [None]
  - HAEMORRHAGE [None]
  - MUSCULOSKELETAL DISCOMFORT [None]
  - NAUSEA [None]
  - RASH [None]
  - WEIGHT DECREASED [None]
